FAERS Safety Report 10582161 (Version 1)
Quarter: 2014Q4

REPORT INFORMATION
  Report Type: Spontaneous
  Country: GB (occurrence: GB)
  Receive Date: 20141113
  Receipt Date: 20141113
  Transmission Date: 20150529
  Serious: Yes (Other)
  Sender: FDA-Public Use
  Company Number: GB-WATSON-2014-24090

PATIENT
  Sex: Female

DRUGS (2)
  1. ALLOPURINOL (UNKNOWN) [Suspect]
     Active Substance: ALLOPURINOL
     Indication: PRODUCT USED FOR UNKNOWN INDICATION
     Dosage: 300 MG, UNK
     Route: 065
     Dates: start: 201410
  2. ALLOPURINOL (UNKNOWN) [Suspect]
     Active Substance: ALLOPURINOL
     Dosage: 200 MG, UNK
     Route: 065
     Dates: start: 2013, end: 201410

REACTIONS (3)
  - Papilloedema [Unknown]
  - Glaucoma [Unknown]
  - Eye disorder [Unknown]

NARRATIVE: CASE EVENT DATE: 2014
